FAERS Safety Report 8088902-9 (Version None)
Quarter: 2012Q1

REPORT INFORMATION
  Report Type: 
  Country: None (occurrence: None)
  Receive Date: 20120128
  Receipt Date: 20110801
  Transmission Date: 20120608
  Serious: No
  Sender: FDA-Public Use
  Company Number: US-ABBOTT-10P-163-0634025-00

PATIENT
  Sex: Female
  Weight: 49.94 kg

DRUGS (4)
  1. HUMIRA [Suspect]
     Route: 058
     Dates: start: 20100801
  2. VITAMIN D [Concomitant]
     Indication: VITAMIN SUPPLEMENTATION
  3. HUMIRA [Suspect]
     Indication: CROHN'S DISEASE
     Route: 058
     Dates: start: 20090101
  4. VITAMIN B-12 [Concomitant]
     Indication: VITAMIN SUPPLEMENTATION
     Dosage: NASAL SPRAY DAILY

REACTIONS (8)
  - INJECTION SITE HAEMATOMA [None]
  - NAUSEA [None]
  - FATIGUE [None]
  - DRUG EFFECT DECREASED [None]
  - CROHN'S DISEASE [None]
  - CONTUSION [None]
  - ARTHRALGIA [None]
  - ABDOMINAL PAIN [None]
